FAERS Safety Report 8423348-2 (Version None)
Quarter: 2012Q2

REPORT INFORMATION
  Report Type: 
  Country: None (occurrence: None)
  Receive Date: 20120608
  Receipt Date: 20120531
  Transmission Date: 20120825
  Serious: Yes (Other)
  Sender: FDA-Public Use
  Company Number: US-US-EMD SERONO, INC.-7109058

PATIENT
  Sex: Female
  Weight: 59 kg

DRUGS (7)
  1. EXTRA STRENGTH TYLENOL [Concomitant]
     Indication: PREMEDICATION
  2. PROVIGIL [Concomitant]
     Indication: FATIGUE
  3. REBIF [Suspect]
     Route: 058
     Dates: start: 20120124
  4. REBIF [Suspect]
     Indication: MULTIPLE SCLEROSIS
     Route: 058
     Dates: start: 20080724
  5. REBIF [Suspect]
     Route: 058
     Dates: start: 20111219
  6. PROVIGIL [Concomitant]
     Indication: NARCOLEPSY
  7. DETROL [Concomitant]
     Indication: INCONTINENCE

REACTIONS (6)
  - WEIGHT DECREASED [None]
  - CONVULSION [None]
  - MOBILITY DECREASED [None]
  - OPTIC NEURITIS [None]
  - EMOTIONAL DISTRESS [None]
  - MULTIPLE SCLEROSIS RELAPSE [None]
